FAERS Safety Report 25715335 (Version 2)
Quarter: 2025Q4

REPORT INFORMATION
  Report Type: Spontaneous
  Country: CA (occurrence: CA)
  Receive Date: 20250822
  Receipt Date: 20251223
  Transmission Date: 20260119
  Serious: Yes (Death, Life-Threatening, Hospitalization, Other)
  Sender: AZURITY PHARMACEUTICALS
  Company Number: CA-Covis Pharma Europe B.V.-2023COV01311

PATIENT
  Age: 65 Year
  Sex: Male

DRUGS (429)
  1. OMNARIS [Suspect]
     Active Substance: CICLESONIDE
     Indication: Product used for unknown indication
     Dosage: 750 MILLIGRAM, DAILY
     Route: 045
  2. OMNARIS [Suspect]
     Active Substance: CICLESONIDE
     Dosage: 750 MILLIGRAM
     Route: 045
  3. FORMOTEROL FUMARATE [Suspect]
     Active Substance: FORMOTEROL FUMARATE
     Indication: Product used for unknown indication
     Dosage: UNK
     Route: 065
  4. PANTOPRAZOLE [Suspect]
     Active Substance: PANTOPRAZOLE
     Indication: Product used for unknown indication
     Dosage: 1 DOSAGE FORM, Q12H
     Route: 065
  5. CICLESONIDE [Suspect]
     Active Substance: CICLESONIDE
     Indication: Product used for unknown indication
     Dosage: 750 MILLIGRAM, DAILY
     Route: 065
  6. CICLESONIDE [Suspect]
     Active Substance: CICLESONIDE
     Dosage: 15.0 MILLIGRAM
     Route: 065
  7. CICLESONIDE [Suspect]
     Active Substance: CICLESONIDE
     Dosage: UNK
     Route: 065
  8. CICLESONIDE [Suspect]
     Active Substance: CICLESONIDE
     Dosage: UNK
     Route: 065
  9. CICLESONIDE [Suspect]
     Active Substance: CICLESONIDE
     Indication: Product used for unknown indication
     Dosage: UNK
     Route: 065
  10. ADVAIR HFA [Suspect]
     Active Substance: FLUTICASONE PROPIONATE\SALMETEROL XINAFOATE
     Indication: Product used for unknown indication
     Dosage: UNK
     Route: 065
  11. FOSAMAX [Suspect]
     Active Substance: ALENDRONATE SODIUM
     Indication: Product used for unknown indication
     Dosage: 70 MILLIGRAM, WEEKLY
     Route: 065
  12. FOSAMAX [Suspect]
     Active Substance: ALENDRONATE SODIUM
     Dosage: 1 DOSAGE FORM, QD
     Route: 065
  13. FOSAMAX [Suspect]
     Active Substance: ALENDRONATE SODIUM
     Dosage: 70 MILLIGRAM
     Route: 065
  14. FOSAMAX [Suspect]
     Active Substance: ALENDRONATE SODIUM
     Dosage: 1 DOSAGE FORM
     Route: 065
  15. FOSAMAX [Suspect]
     Active Substance: ALENDRONATE SODIUM
     Dosage: 70 MILLIGRAM, QD
     Route: 065
  16. FOSAMAX [Suspect]
     Active Substance: ALENDRONATE SODIUM
     Dosage: UNK
     Route: 065
  17. FOSAMAX [Suspect]
     Active Substance: ALENDRONATE SODIUM
     Dosage: 100 MILLIGRAM, QD
     Route: 065
  18. FOSAMAX [Suspect]
     Active Substance: ALENDRONATE SODIUM
     Dosage: 1 DOSAGE FORM, WEEKLY
     Route: 065
  19. FOSAMAX [Suspect]
     Active Substance: ALENDRONATE SODIUM
     Dosage: UNK, QD
     Route: 065
  20. FOSAMAX [Suspect]
     Active Substance: ALENDRONATE SODIUM
     Dosage: 100 MILLIGRAM
     Route: 065
  21. FOSAMAX [Suspect]
     Active Substance: ALENDRONATE SODIUM
     Indication: Product used for unknown indication
     Dosage: 100 MILLIGRAM
     Route: 065
  22. FOSAMAX [Suspect]
     Active Substance: ALENDRONATE SODIUM
     Dosage: 70 MILLIGRAM
     Route: 065
  23. FOSAMAX [Suspect]
     Active Substance: ALENDRONATE SODIUM
     Dosage: 100 MILLIGRAM, QD
     Route: 065
  24. FOSAMAX [Suspect]
     Active Substance: ALENDRONATE SODIUM
     Dosage: UNK
     Route: 065
  25. FOSAMAX [Suspect]
     Active Substance: ALENDRONATE SODIUM
     Dosage: 70 MILLIGRAM, QD
     Route: 065
  26. FOSAMAX [Suspect]
     Active Substance: ALENDRONATE SODIUM
     Dosage: UNK
     Route: 065
  27. FOSAMAX [Suspect]
     Active Substance: ALENDRONATE SODIUM
     Dosage: 70 MILLIGRAM, WEEKLY
     Route: 065
  28. FOSAMAX [Suspect]
     Active Substance: ALENDRONATE SODIUM
     Dosage: 1 DOSAGE FORM
     Route: 065
  29. AMOXICILLIN AND CLAVULANATE POTASSIUM [Suspect]
     Active Substance: AMOXICILLIN\CLAVULANATE POTASSIUM
     Indication: Product used for unknown indication
     Dosage: UNK
     Route: 065
  30. AZATHIOPRINE [Suspect]
     Active Substance: AZATHIOPRINE
     Indication: Product used for unknown indication
     Dosage: 100 MILLIGRAM, QD
     Route: 048
  31. AZATHIOPRINE [Suspect]
     Active Substance: AZATHIOPRINE
     Dosage: UNK
     Route: 048
  32. AZATHIOPRINE [Suspect]
     Active Substance: AZATHIOPRINE
     Dosage: 100 MILLIGRAM
     Route: 065
  33. AZATHIOPRINE [Suspect]
     Active Substance: AZATHIOPRINE
     Dosage: UNK
     Route: 065
  34. AZATHIOPRINE [Suspect]
     Active Substance: AZATHIOPRINE
     Indication: Product used for unknown indication
     Dosage: 50 MILLIGRAM, DAILY
     Route: 065
  35. AZATHIOPRINE [Suspect]
     Active Substance: AZATHIOPRINE
     Dosage: 2 MILLIGRAM, DAILY
     Route: 065
  36. AZATHIOPRINE [Suspect]
     Active Substance: AZATHIOPRINE
     Dosage: 100 MILLIGRAM, DAILY
     Route: 065
  37. AZATHIOPRINE [Suspect]
     Active Substance: AZATHIOPRINE
     Dosage: 70 MILLIGRAM
     Route: 065
  38. AZATHIOPRINE [Suspect]
     Active Substance: AZATHIOPRINE
     Dosage: 1 DOSAGE FORM, QD
     Route: 065
  39. AZATHIOPRINE [Suspect]
     Active Substance: AZATHIOPRINE
     Dosage: 1 MILLIGRAM, DAILY
     Route: 065
  40. AZITHROMYCIN DIHYDRATE [Suspect]
     Active Substance: AZITHROMYCIN DIHYDRATE
     Indication: Product used for unknown indication
     Dosage: 2 DOSAGE FORM, DAILY
     Route: 065
  41. AZITHROMYCIN DIHYDRATE [Suspect]
     Active Substance: AZITHROMYCIN DIHYDRATE
     Route: 065
  42. AZITHROMYCIN DIHYDRATE [Suspect]
     Active Substance: AZITHROMYCIN DIHYDRATE
     Dosage: UNK
     Route: 065
  43. AZITHROMYCIN DIHYDRATE [Suspect]
     Active Substance: AZITHROMYCIN DIHYDRATE
     Dosage: UNK
     Route: 065
  44. BETA GLUCAN [Suspect]
     Active Substance: BETA GLUCAN
     Indication: Product used for unknown indication
     Dosage: UNK
     Route: 065
  45. BETAMETHASONE [Suspect]
     Active Substance: BETAMETHASONE
     Indication: Product used for unknown indication
     Dosage: UNK
     Route: 065
  46. BETAMETHASONE DIPROPIONATE [Suspect]
     Active Substance: BETAMETHASONE DIPROPIONATE
     Indication: Product used for unknown indication
     Dosage: UNK
     Route: 065
  47. BUDESONIDE [Suspect]
     Active Substance: BUDESONIDE
     Indication: Product used for unknown indication
     Dosage: UNK
     Route: 065
  48. CALCIUM CARBONATE [Suspect]
     Active Substance: CALCIUM CARBONATE
     Indication: Product used for unknown indication
     Dosage: UNK
     Route: 065
  49. CALCIUM CARBONATE [Suspect]
     Active Substance: CALCIUM CARBONATE
     Dosage: 2 DOSAGE FORM, DAILY
     Route: 065
  50. CALCIUM CARBONATE [Suspect]
     Active Substance: CALCIUM CARBONATE
     Dosage: 500 MILLIGRAM, DAILY
     Route: 065
  51. CALCIUM CARBONATE [Suspect]
     Active Substance: CALCIUM CARBONATE
     Dosage: UNK
     Route: 065
  52. CALCIUM CARBONATE [Suspect]
     Active Substance: CALCIUM CARBONATE
     Indication: Product used for unknown indication
     Dosage: 1 DOSAGE FORM, DAILY (EVERY 24 HOURS)
     Route: 065
  53. CALCIUM CARBONATE [Suspect]
     Active Substance: CALCIUM CARBONATE
     Dosage: 500 MILLIGRAM
     Route: 065
  54. CALCIUM SENNOSIDES [Suspect]
     Active Substance: SENNOSIDES
     Indication: Product used for unknown indication
     Dosage: UNK
     Route: 065
  55. CANDESARTAN [Suspect]
     Active Substance: CANDESARTAN
     Indication: Product used for unknown indication
     Dosage: 1 DOSAGE FORM, DAILY
     Route: 048
  56. CANDESARTAN [Suspect]
     Active Substance: CANDESARTAN
     Dosage: UNK
     Route: 048
  57. CANDESARTAN [Suspect]
     Active Substance: CANDESARTAN
     Dosage: UNK
     Route: 065
  58. CANDESARTAN [Suspect]
     Active Substance: CANDESARTAN
     Dosage: 1 DOSAGE FORM, DAILY
     Route: 048
  59. CANDESARTAN CILEXETIL\HYDROCHLOROTHIAZIDE [Suspect]
     Active Substance: CANDESARTAN CILEXETIL\HYDROCHLOROTHIAZIDE
     Indication: Product used for unknown indication
     Dosage: 1 DOSAGE FORM, DAILY
     Route: 048
  60. CANDESARTAN CILEXETIL\HYDROCHLOROTHIAZIDE [Suspect]
     Active Substance: CANDESARTAN CILEXETIL\HYDROCHLOROTHIAZIDE
     Dosage: UNK, DAILY
     Route: 048
  61. CANDESARTAN CILEXETIL\HYDROCHLOROTHIAZIDE [Suspect]
     Active Substance: CANDESARTAN CILEXETIL\HYDROCHLOROTHIAZIDE
     Dosage: 52 MILLIGRAM, DAILY
     Route: 048
  62. CANDESARTAN CILEXETIL\HYDROCHLOROTHIAZIDE [Suspect]
     Active Substance: CANDESARTAN CILEXETIL\HYDROCHLOROTHIAZIDE
     Dosage: 500 MILLIGRAM
     Route: 065
  63. CANDESARTAN CILEXETIL\HYDROCHLOROTHIAZIDE [Suspect]
     Active Substance: CANDESARTAN CILEXETIL\HYDROCHLOROTHIAZIDE
     Dosage: 1 MILLIGRAM, DAILY
     Route: 048
  64. CANDESARTAN CILEXETIL\HYDROCHLOROTHIAZIDE [Suspect]
     Active Substance: CANDESARTAN CILEXETIL\HYDROCHLOROTHIAZIDE
     Dosage: UNK
     Route: 048
  65. CANDESARTAN CILEXETIL\HYDROCHLOROTHIAZIDE [Suspect]
     Active Substance: CANDESARTAN CILEXETIL\HYDROCHLOROTHIAZIDE
     Dosage: 32 MILLIGRAM, DAILY
     Route: 048
  66. CANDESARTAN CILEXETIL\HYDROCHLOROTHIAZIDE [Suspect]
     Active Substance: CANDESARTAN CILEXETIL\HYDROCHLOROTHIAZIDE
     Dosage: UNK
     Route: 065
  67. CEFUROXIME SODIUM [Suspect]
     Active Substance: CEFUROXIME SODIUM
     Indication: Product used for unknown indication
     Dosage: UNK, QD
     Route: 065
  68. CEFUROXIME SODIUM [Suspect]
     Active Substance: CEFUROXIME SODIUM
     Dosage: 1 DOSAGE FORM, DAILY
     Route: 065
  69. CEFUROXIME SODIUM [Suspect]
     Active Substance: CEFUROXIME SODIUM
     Dosage: 500 MILLIGRAM, Q12H
     Route: 065
  70. CEFUROXIME SODIUM [Suspect]
     Active Substance: CEFUROXIME SODIUM
     Dosage: UNK
     Route: 065
  71. CEFUROXIME SODIUM [Suspect]
     Active Substance: CEFUROXIME SODIUM
     Dosage: UNK
     Route: 065
  72. CEFUROXIME SODIUM [Suspect]
     Active Substance: CEFUROXIME SODIUM
     Dosage: 2 DOSAGE FORM, Q12H
     Route: 065
  73. CEFUROXIME SODIUM [Suspect]
     Active Substance: CEFUROXIME SODIUM
     Dosage: 2 MILLIGRAM, QD
     Route: 065
  74. CEFUROXIME SODIUM [Suspect]
     Active Substance: CEFUROXIME SODIUM
     Dosage: 1000 MILLIGRAM
     Route: 065
  75. CEFUROXIME SODIUM [Suspect]
     Active Substance: CEFUROXIME SODIUM
     Dosage: 500 MILLIGRAM
     Route: 065
  76. CEFUROXIME SODIUM [Suspect]
     Active Substance: CEFUROXIME SODIUM
     Dosage: UNK, QD
     Route: 065
  77. CEFUROXIME SODIUM [Suspect]
     Active Substance: CEFUROXIME SODIUM
     Dosage: UNK
     Route: 065
  78. CEFUROXIME SODIUM [Suspect]
     Active Substance: CEFUROXIME SODIUM
     Dosage: UNK
     Route: 065
  79. CEFUROXIME SODIUM [Suspect]
     Active Substance: CEFUROXIME SODIUM
     Dosage: UNK
     Route: 065
  80. CEFUROXIME SODIUM [Suspect]
     Active Substance: CEFUROXIME SODIUM
     Dosage: 2000 MILLIGRAM, QD
     Route: 065
  81. CEFUROXIME SODIUM [Suspect]
     Active Substance: CEFUROXIME SODIUM
     Dosage: UNK
     Route: 065
  82. CEFUROXIME AXETIL [Suspect]
     Active Substance: CEFUROXIME AXETIL
     Indication: Product used for unknown indication
     Dosage: 500 MICROGRAM, Q12H
     Route: 065
  83. CEFUROXIME AXETIL [Suspect]
     Active Substance: CEFUROXIME AXETIL
     Dosage: UNK
     Route: 065
  84. CEFUROXIME AXETIL [Suspect]
     Active Substance: CEFUROXIME AXETIL
     Dosage: UNK
     Route: 065
  85. CEFUROXIME AXETIL [Suspect]
     Active Substance: CEFUROXIME AXETIL
     Indication: Product used for unknown indication
     Dosage: 500 MILLIGRAM, Q12H
     Route: 065
  86. CEFUROXIME AXETIL [Suspect]
     Active Substance: CEFUROXIME AXETIL
     Dosage: UNK
     Route: 065
  87. CEFUROXIME AXETIL [Suspect]
     Active Substance: CEFUROXIME AXETIL
     Dosage: 500 MILLIGRAM, Q12H
     Route: 065
  88. CEPHALEXIN [Suspect]
     Active Substance: CEPHALEXIN
     Indication: Product used for unknown indication
     Dosage: UNK
     Route: 065
  89. CEPHALEXIN [Suspect]
     Active Substance: CEPHALEXIN
     Dosage: UNK
     Route: 065
  90. CEPHALEXIN [Suspect]
     Active Substance: CEPHALEXIN
     Dosage: UNK
     Route: 065
  91. CLOTRIMAZOLE [Suspect]
     Active Substance: CLOTRIMAZOLE
     Indication: Product used for unknown indication
     Dosage: UNK
     Route: 065
  92. DILTIAZEM [Suspect]
     Active Substance: DILTIAZEM
     Indication: Product used for unknown indication
     Dosage: UNK
     Route: 065
  93. DILTIAZEM [Suspect]
     Active Substance: DILTIAZEM
     Dosage: UNK
     Route: 065
  94. DOMPERIDONE MALEATE [Suspect]
     Active Substance: DOMPERIDONE MALEATE
     Indication: Product used for unknown indication
     Dosage: 1 DOSAGE FORM, DAILY
     Route: 065
  95. DOMPERIDONE MALEATE [Suspect]
     Active Substance: DOMPERIDONE MALEATE
     Dosage: 10 MILLIGRAM, Q12H
     Route: 065
  96. DOMPERIDONE MALEATE [Suspect]
     Active Substance: DOMPERIDONE MALEATE
     Dosage: UNK
     Route: 065
  97. DOMPERIDONE MALEATE [Suspect]
     Active Substance: DOMPERIDONE MALEATE
     Dosage: 2 DOSAGE FORM, DAILY
     Route: 065
  98. DOMPERIDONE MALEATE [Suspect]
     Active Substance: DOMPERIDONE MALEATE
     Dosage: UNK
     Route: 065
  99. DOMPERIDONE MALEATE [Suspect]
     Active Substance: DOMPERIDONE MALEATE
     Dosage: UNK
     Route: 065
  100. DOXAZOSIN [Suspect]
     Active Substance: DOXAZOSIN MESYLATE
     Indication: Product used for unknown indication
     Dosage: 4 MILLIGRAM
     Route: 065
  101. DOXAZOSIN [Suspect]
     Active Substance: DOXAZOSIN MESYLATE
     Dosage: 4 MILLIGRAM
     Route: 065
  102. DOXAZOSIN MESYLATE [Suspect]
     Active Substance: DOXAZOSIN MESYLATE
     Indication: Product used for unknown indication
     Dosage: 4 MILLIGRAM
     Route: 065
  103. DUTASTERIDE [Suspect]
     Active Substance: DUTASTERIDE
     Indication: Product used for unknown indication
     Dosage: UNK
     Route: 065
  104. ELIQUIS [Suspect]
     Active Substance: APIXABAN
     Indication: Product used for unknown indication
     Dosage: UNK
     Route: 065
  105. ELIQUIS [Suspect]
     Active Substance: APIXABAN
     Indication: Product used for unknown indication
     Dosage: UNK
     Route: 065
  106. ERGOCALCIFEROL [Suspect]
     Active Substance: ERGOCALCIFEROL
     Indication: Product used for unknown indication
     Dosage: UNK
     Route: 065
  107. ERGOCALCIFEROL [Suspect]
     Active Substance: ERGOCALCIFEROL
     Dosage: UNK
     Route: 065
  108. ERGOCALCIFEROL [Suspect]
     Active Substance: ERGOCALCIFEROL
     Dosage: 20 MILLIGRAM
     Route: 065
  109. ESCITALOPRAM [Suspect]
     Active Substance: ESCITALOPRAM OXALATE
     Indication: Product used for unknown indication
     Dosage: 10 MILLIGRAM
     Route: 065
  110. ESCITALOPRAM [Suspect]
     Active Substance: ESCITALOPRAM OXALATE
     Dosage: 10.0 MILLIGRAM
     Route: 065
  111. ESCITALOPRAM [Suspect]
     Active Substance: ESCITALOPRAM OXALATE
     Dosage: 2 DOSAGE FORM
     Route: 065
  112. FLOMAX [Suspect]
     Active Substance: TAMSULOSIN HYDROCHLORIDE
     Indication: Product used for unknown indication
     Dosage: UNK
     Route: 065
  113. FORMOTEROL [Suspect]
     Active Substance: FORMOTEROL
     Indication: Product used for unknown indication
     Dosage: 2 DOSAGE FORM
  114. FUROSEMIDE [Suspect]
     Active Substance: FUROSEMIDE
     Indication: Product used for unknown indication
     Dosage: 2 DOSAGE FORM, DAILY
     Route: 065
  115. FUROSEMIDE [Suspect]
     Active Substance: FUROSEMIDE
     Dosage: UNK
     Route: 065
  116. FUROSEMIDE [Suspect]
     Active Substance: FUROSEMIDE
     Dosage: UNK
     Route: 065
  117. FUROSEMIDE [Suspect]
     Active Substance: FUROSEMIDE
     Indication: Product used for unknown indication
     Dosage: 1 DOSAGE FORM, DAILY
     Route: 065
  118. GLUCAGON [Suspect]
     Active Substance: GLUCAGON
     Indication: Product used for unknown indication
     Dosage: 1 MILLIGRAM
     Route: 065
  119. GLUCAGON [Suspect]
     Active Substance: GLUCAGON
     Dosage: 1 MILLIGRAM
     Route: 065
  120. GLUCAGON [Suspect]
     Active Substance: GLUCAGON
     Dosage: UNK
     Route: 065
  121. GLUCAGON [Suspect]
     Active Substance: GLUCAGON
     Dosage: UNK
     Route: 065
  122. GLUCAGON HYDROCHLORIDE [Suspect]
     Active Substance: GLUCAGON HYDROCHLORIDE
     Indication: Product used for unknown indication
     Dosage: UNK
     Route: 065
  123. IMURAN [Suspect]
     Active Substance: AZATHIOPRINE
     Indication: Product used for unknown indication
     Dosage: UNK
     Route: 065
  124. NOVORAPID [Suspect]
     Active Substance: INSULIN ASPART
     Indication: Product used for unknown indication
     Dosage: UNK
     Route: 065
  125. NOVORAPID [Suspect]
     Active Substance: INSULIN ASPART
     Dosage: 1 DOSAGE FORM, QD
     Route: 058
  126. NOVORAPID [Suspect]
     Active Substance: INSULIN ASPART
     Dosage: UNK
     Route: 058
  127. NOVORAPID [Suspect]
     Active Substance: INSULIN ASPART
     Dosage: UNK
     Route: 058
  128. INSULIN GLARGINE [Suspect]
     Active Substance: INSULIN GLARGINE
     Indication: Product used for unknown indication
     Dosage: UNK
     Route: 058
  129. INSULIN GLARGINE [Suspect]
     Active Substance: INSULIN GLARGINE
     Dosage: UNK
     Route: 058
  130. INSULIN GLARGINE [Suspect]
     Active Substance: INSULIN GLARGINE
     Dosage: 1 DOSAGE FORM
     Route: 058
  131. INSULIN GLARGINE [Suspect]
     Active Substance: INSULIN GLARGINE
     Indication: Product used for unknown indication
     Dosage: 1 DOSAGE FORM
     Route: 058
  132. INSULIN GLARGINE [Suspect]
     Active Substance: INSULIN GLARGINE
     Dosage: 1 DOSAGE FORM
     Route: 058
  133. INSULIN GLARGINE [Suspect]
     Active Substance: INSULIN GLARGINE
     Dosage: UNK
     Route: 058
  134. INSULIN GLARGINE [Suspect]
     Active Substance: INSULIN GLARGINE
     Dosage: UNK
     Route: 058
  135. LASIX [Suspect]
     Active Substance: FUROSEMIDE
     Indication: Product used for unknown indication
     Dosage: UNK
     Route: 065
  136. LEVOFLOXACIN HEMIHYDRATE [Suspect]
     Active Substance: LEVOFLOXACIN
     Indication: Product used for unknown indication
     Dosage: UNK
     Route: 065
  137. LEVOFLOXACIN HEMIHYDRATE [Suspect]
     Active Substance: LEVOFLOXACIN
     Dosage: UNK
     Route: 065
  138. LEVOFLOXACIN HEMIHYDRATE [Suspect]
     Active Substance: LEVOFLOXACIN
     Dosage: 500 MILLIGRAM
     Route: 065
  139. LEVOFLOXACIN HEMIHYDRATE [Suspect]
     Active Substance: LEVOFLOXACIN
     Dosage: UNK
     Route: 065
  140. LEVOFLOXACIN HEMIHYDRATE [Suspect]
     Active Substance: LEVOFLOXACIN
     Dosage: 500 MILLIGRAM
     Route: 065
  141. LEVOFLOXACIN HEMIHYDRATE [Suspect]
     Active Substance: LEVOFLOXACIN
     Dosage: 1 DOSAGE FORM, DAILY
     Route: 065
  142. LEVOFLOXACIN HEMIHYDRATE [Suspect]
     Active Substance: LEVOFLOXACIN
     Dosage: 1 DOSAGE FORM, DAILY
     Route: 065
  143. LEVOFLOXACIN HEMIHYDRATE [Suspect]
     Active Substance: LEVOFLOXACIN
     Indication: Product used for unknown indication
     Dosage: UNK
     Route: 065
  144. LEVOFLOXACIN HEMIHYDRATE [Suspect]
     Active Substance: LEVOFLOXACIN
     Dosage: UNK
     Route: 065
  145. LEVOFLOXACIN HEMIHYDRATE [Suspect]
     Active Substance: LEVOFLOXACIN
     Dosage: 500 MILLIGRAM
     Route: 065
  146. LEVOFLOXACIN HEMIHYDRATE [Suspect]
     Active Substance: LEVOFLOXACIN
     Dosage: UNK MILLIGRAM
     Route: 065
  147. LEVOFLOXACIN HEMIHYDRATE [Suspect]
     Active Substance: LEVOFLOXACIN
     Dosage: 1 DOSAGE FORM
     Route: 065
  148. LEVOFLOXACIN HEMIHYDRATE [Suspect]
     Active Substance: LEVOFLOXACIN
     Dosage: 1 DOSAGE FORM, QD
     Route: 065
  149. LEVOFLOXACIN HEMIHYDRATE [Suspect]
     Active Substance: LEVOFLOXACIN
     Dosage: 1 DOSAGE FORM, QD
     Route: 065
  150. LEVOFLOXACIN HEMIHYDRATE [Suspect]
     Active Substance: LEVOFLOXACIN
     Dosage: UNK
     Route: 065
  151. LEVOTHYROXINE SODIUM [Suspect]
     Active Substance: LEVOTHYROXINE SODIUM
     Indication: Product used for unknown indication
     Dosage: UNK
     Route: 065
  152. LIRAGLUTIDE [Suspect]
     Active Substance: LIRAGLUTIDE
     Indication: Product used for unknown indication
     Dosage: UNK
     Route: 065
  153. MAGNESIUM OXIDE [Suspect]
     Active Substance: MAGNESIUM OXIDE
     Indication: Product used for unknown indication
     Dosage: UNK
     Route: 065
  154. MAGNESIUM OXIDE [Suspect]
     Active Substance: MAGNESIUM OXIDE
     Dosage: UNK
     Route: 065
  155. MAGNESIUM OXIDE [Suspect]
     Active Substance: MAGNESIUM OXIDE
     Dosage: 1 DOSAGE FORM
     Route: 065
  156. MAGNESIUM OXIDE [Suspect]
     Active Substance: MAGNESIUM OXIDE
     Dosage: UNK
     Route: 065
  157. MAGNESIUM OXIDE [Suspect]
     Active Substance: MAGNESIUM OXIDE
     Dosage: 420.0 MILLIGRAM
     Route: 065
  158. MAGNESIUM OXIDE [Suspect]
     Active Substance: MAGNESIUM OXIDE
     Dosage: 2 DOSAGE FORM
     Route: 065
  159. MAGNESIUM OXIDE [Suspect]
     Active Substance: MAGNESIUM OXIDE
     Indication: Product used for unknown indication
     Dosage: 2 DOSAGE FORM
     Route: 065
  160. METFORMIN [Suspect]
     Active Substance: METFORMIN HYDROCHLORIDE
     Indication: Product used for unknown indication
     Dosage: UNK
     Route: 065
  161. METFORMIN HYDROCHLORIDE [Suspect]
     Active Substance: METFORMIN HYDROCHLORIDE
     Indication: Product used for unknown indication
     Dosage: UNK
     Route: 065
  162. METFORMIN HYDROCHLORIDE [Suspect]
     Active Substance: METFORMIN HYDROCHLORIDE
     Dosage: 4 DOSAGE FORM, DAILY
     Route: 065
  163. METFORMIN HYDROCHLORIDE [Suspect]
     Active Substance: METFORMIN HYDROCHLORIDE
     Dosage: UNK
     Route: 065
  164. METFORMIN HYDROCHLORIDE [Suspect]
     Active Substance: METFORMIN HYDROCHLORIDE
     Dosage: UNK
     Route: 065
  165. METFORMIN HYDROCHLORIDE [Suspect]
     Active Substance: METFORMIN HYDROCHLORIDE
     Dosage: 1 DOSAGE FORM, DAILY
     Route: 065
  166. METFORMIN HYDROCHLORIDE [Suspect]
     Active Substance: METFORMIN HYDROCHLORIDE
     Dosage: 2 DOSAGE FORM, DAILY
     Route: 065
  167. MONTELUKAST SODIUM [Suspect]
     Active Substance: MONTELUKAST SODIUM
     Indication: Product used for unknown indication
     Dosage: UNK
     Route: 065
  168. MORNIFLUMATE [Suspect]
     Active Substance: MORNIFLUMATE
     Indication: Product used for unknown indication
     Dosage: UNK
     Route: 065
  169. MOXIFLOXACIN [Suspect]
     Active Substance: MOXIFLOXACIN
     Indication: Product used for unknown indication
     Dosage: UNK
     Route: 065
  170. MOXIFLOXACIN [Suspect]
     Active Substance: MOXIFLOXACIN
     Dosage: UNK
     Route: 065
  171. MOXIFLOXACIN [Suspect]
     Active Substance: MOXIFLOXACIN
     Dosage: UNK
     Route: 065
  172. MOXIFLOXACIN HYDROCHLORIDE [Suspect]
     Active Substance: MOXIFLOXACIN HYDROCHLORIDE
     Indication: Product used for unknown indication
     Dosage: UNK
     Route: 065
  173. NUCALA [Suspect]
     Active Substance: MEPOLIZUMAB
     Indication: Product used for unknown indication
     Dosage: UNK
     Route: 065
  174. PANTOPRAZOLE [Suspect]
     Active Substance: PANTOPRAZOLE
     Indication: Product used for unknown indication
     Dosage: UNK
     Route: 065
  175. PANTOPRAZOLE [Suspect]
     Active Substance: PANTOPRAZOLE
     Dosage: 4 DOSAGE FORM
     Route: 065
  176. PANTOPRAZOLE MAGNESIUM [Suspect]
     Active Substance: PANTOPRAZOLE MAGNESIUM
     Indication: Product used for unknown indication
     Dosage: 1 DOSAGE FORM, Q12H
     Route: 065
  177. PANTOPRAZOLE SODIUM [Suspect]
     Active Substance: PANTOPRAZOLE SODIUM
     Indication: Product used for unknown indication
     Dosage: 40 MICROGRAM, Q12H
     Route: 065
  178. PANTOPRAZOLE SODIUM [Suspect]
     Active Substance: PANTOPRAZOLE SODIUM
     Dosage: 2 DOSAGE FORM
     Route: 065
  179. PANTOPRAZOLE SODIUM [Suspect]
     Active Substance: PANTOPRAZOLE SODIUM
     Dosage: UNK
     Route: 065
  180. PANTOPRAZOLE SODIUM [Suspect]
     Active Substance: PANTOPRAZOLE SODIUM
     Dosage: 2 DOSAGE FORM, DAILY
  181. PANTOPRAZOLE SODIUM [Suspect]
     Active Substance: PANTOPRAZOLE SODIUM
     Dosage: UNK
     Route: 065
  182. AZITHROMYCIN ANHYDROUS [Suspect]
     Active Substance: AZITHROMYCIN ANHYDROUS
     Indication: Product used for unknown indication
     Dosage: UNK
     Route: 065
  183. AZITHROMYCIN ANHYDROUS [Suspect]
     Active Substance: AZITHROMYCIN ANHYDROUS
     Dosage: UNK
     Route: 065
  184. AZITHROMYCIN ANHYDROUS [Suspect]
     Active Substance: AZITHROMYCIN ANHYDROUS
     Dosage: 2 DOSAGE FORM, DAILY
     Route: 065
  185. AZITHROMYCIN ANHYDROUS [Suspect]
     Active Substance: AZITHROMYCIN ANHYDROUS
     Dosage: 250 MILLIGRAM, QD
     Route: 065
  186. AZITHROMYCIN ANHYDROUS [Suspect]
     Active Substance: AZITHROMYCIN ANHYDROUS
     Dosage: UNK
     Route: 065
  187. PANTOPRAZOLE SODIUM [Suspect]
     Active Substance: PANTOPRAZOLE SODIUM
     Indication: Product used for unknown indication
     Dosage: UNK
     Route: 065
  188. AZITHROMYCIN ANHYDROUS [Suspect]
     Active Substance: AZITHROMYCIN ANHYDROUS
     Indication: Product used for unknown indication
     Dosage: 250 MILLIGRAM, DAILY
     Route: 065
  189. PREDNISONE [Suspect]
     Active Substance: PREDNISONE
     Indication: Product used for unknown indication
     Dosage: 50 MILLIGRAM
     Route: 065
  190. PREDNISONE [Suspect]
     Active Substance: PREDNISONE
     Indication: Product used for unknown indication
     Dosage: 15 MILLIGRAM, DAILY
     Route: 065
  191. PREDNISONE [Suspect]
     Active Substance: PREDNISONE
     Dosage: 1 DOSAGE FORM, WEEKLY
     Route: 065
  192. PREDNISONE [Suspect]
     Active Substance: PREDNISONE
     Dosage: 15 MILLIGRAM
     Route: 065
  193. PREDNISONE [Suspect]
     Active Substance: PREDNISONE
     Dosage: UNK
     Route: 065
  194. PREDNISONE [Suspect]
     Active Substance: PREDNISONE
     Dosage: 10 MILLIGRAM
     Route: 065
  195. PREDNISONE [Suspect]
     Active Substance: PREDNISONE
     Dosage: 1 DOSAGE FORM
     Route: 065
  196. PREDNISONE [Suspect]
     Active Substance: PREDNISONE
     Dosage: 5 MILLIGRAM
     Route: 065
  197. PREDNISONE [Suspect]
     Active Substance: PREDNISONE
     Dosage: 1 DOSAGE FORM
     Route: 065
  198. PREDNISONE [Suspect]
     Active Substance: PREDNISONE
     Dosage: UNK
     Route: 065
  199. PREDNISONE [Suspect]
     Active Substance: PREDNISONE
     Dosage: 15 MILLIGRAM
     Route: 065
  200. PREDNISONE [Suspect]
     Active Substance: PREDNISONE
     Dosage: UNK
     Route: 065
  201. PREDNISONE [Suspect]
     Active Substance: PREDNISONE
     Dosage: 50 MILLIGRAM, DAILY
     Route: 065
  202. PREDNISONE [Suspect]
     Active Substance: PREDNISONE
     Dosage: 80 MILLIGRAM, DAILY
     Route: 065
  203. PREDNISONE [Suspect]
     Active Substance: PREDNISONE
     Dosage: 50 MILLIGRAM, DAILY
     Route: 065
  204. PREDNISONE [Suspect]
     Active Substance: PREDNISONE
     Dosage: 80 MILLIGRAM
     Route: 065
  205. PREDNISONE [Suspect]
     Active Substance: PREDNISONE
     Dosage: 50 MILLIGRAM, DAILY
     Route: 065
  206. PREDNISONE [Suspect]
     Active Substance: PREDNISONE
     Dosage: UNK
     Route: 065
  207. PREDNISONE [Suspect]
     Active Substance: PREDNISONE
     Dosage: 50 MILLIGRAM
     Route: 065
  208. RUPATADINE [Suspect]
     Active Substance: RUPATADINE
     Indication: Product used for unknown indication
     Dosage: UNK
     Route: 065
  209. RUPATADINE [Suspect]
     Active Substance: RUPATADINE
     Dosage: UNK
     Route: 065
  210. ALBUTEROL [Suspect]
     Active Substance: ALBUTEROL
     Indication: Eosinophilic granulomatosis with polyangiitis
     Dosage: 2 DOSAGE FORM
     Route: 065
  211. ALBUTEROL [Suspect]
     Active Substance: ALBUTEROL
     Indication: Asthma
     Dosage: 2 DOSAGE FORMS
     Route: 065
  212. ALBUTEROL [Suspect]
     Active Substance: ALBUTEROL
     Dosage: UNK
     Route: 065
  213. ALBUTEROL [Suspect]
     Active Substance: ALBUTEROL
     Dosage: UNK
     Route: 065
  214. ALBUTEROL [Suspect]
     Active Substance: ALBUTEROL
     Indication: Asthma
     Dosage: 1 DOSAGE FORM, DAILY
     Route: 065
  215. ALBUTEROL [Suspect]
     Active Substance: ALBUTEROL
     Indication: Eosinophilic granulomatosis with polyangiitis
  216. LEVOFLOXACIN [Suspect]
     Active Substance: LEVOFLOXACIN
     Indication: Product used for unknown indication
     Dosage: 750 MILLIGRAM
     Route: 065
  217. SENNOSIDES [Suspect]
     Active Substance: SENNOSIDES
     Indication: Product used for unknown indication
     Dosage: UNK
     Route: 065
  218. SENNOSIDES [Suspect]
     Active Substance: SENNOSIDES
     Dosage: UNK
     Route: 065
  219. SEPTRA [Suspect]
     Active Substance: SULFAMETHOXAZOLE\TRIMETHOPRIM
     Indication: Product used for unknown indication
     Dosage: UNK
     Route: 042
  220. SEPTRA [Suspect]
     Active Substance: SULFAMETHOXAZOLE\TRIMETHOPRIM
     Indication: Prophylaxis
     Dosage: UNK
     Route: 065
  221. SEPTRA [Suspect]
     Active Substance: SULFAMETHOXAZOLE\TRIMETHOPRIM
     Dosage: 3 DOSAGE FORMS
     Route: 065
  222. SERTRALINE HYDROCHLORIDE [Suspect]
     Active Substance: SERTRALINE HYDROCHLORIDE
     Indication: Product used for unknown indication
     Dosage: UNK
     Route: 065
  223. SPIRIVA [Suspect]
     Active Substance: TIOTROPIUM BROMIDE MONOHYDRATE
     Indication: Product used for unknown indication
     Dosage: 2 DOSAGE FORM, DAILY
     Route: 065
  224. SPIRIVA [Suspect]
     Active Substance: TIOTROPIUM BROMIDE MONOHYDRATE
     Dosage: 2 DOSAGE FORM
     Route: 065
  225. SPIRIVA [Suspect]
     Active Substance: TIOTROPIUM BROMIDE MONOHYDRATE
     Dosage: 2 DOSAGE FORM
     Route: 065
  226. SPIRIVA [Suspect]
     Active Substance: TIOTROPIUM BROMIDE MONOHYDRATE
     Dosage: UNK
     Route: 065
  227. SPIRIVA [Suspect]
     Active Substance: TIOTROPIUM BROMIDE MONOHYDRATE
     Indication: Product used for unknown indication
     Dosage: UNK
     Route: 065
  228. TAMSULOSIN [Suspect]
     Active Substance: TAMSULOSIN
     Indication: Product used for unknown indication
     Dosage: 1 DOSAGE FORMS
     Route: 065
  229. TAMSULOSIN [Suspect]
     Active Substance: TAMSULOSIN
     Dosage: UNK
     Route: 065
  230. TAMSULOSIN [Suspect]
     Active Substance: TAMSULOSIN
     Indication: Product used for unknown indication
     Dosage: 1 DOSAGE FORM
     Route: 065
  231. TAMSULOSIN HYDROCHLORIDE [Suspect]
     Active Substance: TAMSULOSIN HYDROCHLORIDE
     Indication: Product used for unknown indication
     Dosage: UNK
     Route: 065
  232. TAMSULOSIN HYDROCHLORIDE [Suspect]
     Active Substance: TAMSULOSIN HYDROCHLORIDE
     Dosage: UNK
     Route: 065
  233. TAMSULOSIN HYDROCHLORIDE [Suspect]
     Active Substance: TAMSULOSIN HYDROCHLORIDE
     Dosage: UNK
     Route: 065
  234. PANTOPRAZOLE MAGNESIUM [Suspect]
     Active Substance: PANTOPRAZOLE MAGNESIUM
     Indication: Product used for unknown indication
     Dosage: 2 DOSAGE FORM, DAILY
     Route: 065
  235. PANTOPRAZOLE MAGNESIUM [Suspect]
     Active Substance: PANTOPRAZOLE MAGNESIUM
     Indication: Product used for unknown indication
     Dosage: UNK
     Route: 065
  236. TIAZAC [Suspect]
     Active Substance: DILTIAZEM HYDROCHLORIDE
     Indication: Product used for unknown indication
     Dosage: 120 MILLIGRAM
     Route: 065
  237. TIAZAC [Suspect]
     Active Substance: DILTIAZEM HYDROCHLORIDE
     Dosage: 120 MILLIGRAM
     Route: 065
  238. TIOTROPIUM BROMIDE MONOHYDRATE [Suspect]
     Active Substance: TIOTROPIUM BROMIDE MONOHYDRATE
     Indication: Product used for unknown indication
     Dosage: UNK
     Route: 065
  239. UMECLIDINIUM BROMIDE [Suspect]
     Active Substance: UMECLIDINIUM BROMIDE
     Indication: Product used for unknown indication
     Dosage: 1 DOSAGE FORM, DAILY
     Route: 065
  240. UMECLIDINIUM BROMIDE\VILANTEROL TRIFENATATE [Suspect]
     Active Substance: UMECLIDINIUM BROMIDE\VILANTEROL TRIFENATATE
     Indication: Product used for unknown indication
     Dosage: 1 DOSAGE FORM
     Route: 065
  241. UMECLIDINIUM BROMIDE\VILANTEROL TRIFENATATE [Suspect]
     Active Substance: UMECLIDINIUM BROMIDE\VILANTEROL TRIFENATATE
     Route: 065
  242. UMECLIDINIUM BROMIDE\VILANTEROL TRIFENATATE [Suspect]
     Active Substance: UMECLIDINIUM BROMIDE\VILANTEROL TRIFENATATE
     Route: 065
  243. UMECLIDINIUM BROMIDE\VILANTEROL TRIFENATATE [Suspect]
     Active Substance: UMECLIDINIUM BROMIDE\VILANTEROL TRIFENATATE
     Indication: Product used for unknown indication
     Dosage: 1 DOSAGE FORM, DAILY
     Route: 065
  244. VITAMIN D3 [Suspect]
     Active Substance: CHOLECALCIFEROL
     Indication: Product used for unknown indication
     Dosage: UNK
     Route: 065
  245. ZENHALE [Suspect]
     Active Substance: FORMOTEROL FUMARATE\MOMETASONE FUROATE
     Indication: Product used for unknown indication
     Dosage: 2 DOSAGE FORM
     Route: 065
  246. ZENHALE [Suspect]
     Active Substance: FORMOTEROL FUMARATE\MOMETASONE FUROATE
     Dosage: 2 DOSAGE FORM
     Route: 065
  247. SULFATRIM [Suspect]
     Active Substance: SULFAMETHOXAZOLE\TRIMETHOPRIM
     Indication: Product used for unknown indication
     Dosage: UNK
     Route: 065
  248. BETAMETHASONE DIPROPIONATE\CLOTRIMAZOLE [Suspect]
     Active Substance: BETAMETHASONE DIPROPIONATE\CLOTRIMAZOLE
     Indication: Product used for unknown indication
     Dosage: UNK
     Route: 065
  249. SULFADIAZINE\TRIMETHOPRIM [Suspect]
     Active Substance: SULFADIAZINE\TRIMETHOPRIM
     Indication: Product used for unknown indication
     Dosage: UNK
     Route: 065
  250. TRELEGY ELLIPTA [Suspect]
     Active Substance: FLUTICASONE FUROATE\UMECLIDINIUM BROMIDE\VILANTEROL TRIFENATATE
     Indication: Product used for unknown indication
     Dosage: UNK
     Route: 065
  251. BETAMETHASONE\CLOTRIMAZOLE [Suspect]
     Active Substance: BETAMETHASONE\CLOTRIMAZOLE
     Indication: Product used for unknown indication
     Dosage: UNK
     Route: 065
  252. AZATHIOPRINE SODIUM [Suspect]
     Active Substance: AZATHIOPRINE SODIUM
     Indication: Product used for unknown indication
     Dosage: 50 MILLIGRAM, QD (POWDER FOR SOLUTION INTRAVENOUS)
     Route: 042
  253. AZATHIOPRINE SODIUM [Suspect]
     Active Substance: AZATHIOPRINE SODIUM
     Dosage: 100 MILLIGRAM, QD (POWDER FOR SOLUTION INTRAVENOUS)
     Route: 065
  254. AZATHIOPRINE SODIUM [Suspect]
     Active Substance: AZATHIOPRINE SODIUM
     Dosage: 70 MILLIGRAM
     Route: 065
  255. AZATHIOPRINE SODIUM [Suspect]
     Active Substance: AZATHIOPRINE SODIUM
     Dosage: 2 MILLIGRAM, QD (POWDER FOR SOLUTION INTRAVENOUS)
     Route: 065
  256. AZATHIOPRINE SODIUM [Suspect]
     Active Substance: AZATHIOPRINE SODIUM
     Dosage: 1 MILLIGRAM, QD (POWDER FOR SOLUTION INTRAVENOUS)
     Route: 065
  257. AZATHIOPRINE SODIUM [Suspect]
     Active Substance: AZATHIOPRINE SODIUM
     Dosage: 1 DOSAGE FORM, QD (POWDER FOR SOLUTION INTRAVENOUS)
     Route: 065
  258. AZATHIOPRINE SODIUM [Suspect]
     Active Substance: AZATHIOPRINE SODIUM
     Dosage: 100 MILLIGRAM, QD (POWDER FOR SOLUTION INTRAVENOUS)
     Route: 065
  259. AZATHIOPRINE SODIUM [Suspect]
     Active Substance: AZATHIOPRINE SODIUM
     Dosage: UNK (POWDER FOR SOLUTION INTRAVENOUS)
     Route: 065
  260. AZATHIOPRINE SODIUM [Suspect]
     Active Substance: AZATHIOPRINE SODIUM
     Dosage: 1 DOSAGE FORM, QD (POWDER FOR SOLUTION INTRAVENOUS)
     Route: 042
  261. AZATHIOPRINE SODIUM [Suspect]
     Active Substance: AZATHIOPRINE SODIUM
     Dosage: UNK
     Route: 065
  262. SENNA [Suspect]
     Active Substance: SENNOSIDES
     Indication: Product used for unknown indication
     Dosage: UNK
     Route: 065
  263. BUDESONIDE\FORMOTEROL FUMARATE [Suspect]
     Active Substance: BUDESONIDE\FORMOTEROL FUMARATE
     Indication: Product used for unknown indication
     Dosage: UNK
     Route: 065
  264. CALCIUM\VITAMIN D [Suspect]
     Active Substance: CALCIUM\VITAMIN D
     Indication: Product used for unknown indication
     Dosage: UNK
     Route: 065
  265. CALCIUM\ERGOCALCIFEROL [Suspect]
     Active Substance: CALCIUM\ERGOCALCIFEROL
     Indication: Product used for unknown indication
     Dosage: UNK
     Route: 065
  266. CALCIUM\ERGOCALCIFEROL [Suspect]
     Active Substance: CALCIUM\ERGOCALCIFEROL
     Dosage: UNK
     Route: 065
  267. VITAMIN D [Suspect]
     Active Substance: VITAMIN D NOS
     Indication: Product used for unknown indication
     Dosage: UNK
     Route: 065
  268. HYDROCHLOROTHIAZIDE [Suspect]
     Active Substance: HYDROCHLOROTHIAZIDE
     Indication: Product used for unknown indication
     Dosage: UNK
     Route: 065
  269. SENNA [Suspect]
     Active Substance: SENNOSIDES
     Indication: Product used for unknown indication
     Dosage: UNK
     Route: 065
  270. PENICILLIN V POTASSIUM [Suspect]
     Active Substance: PENICILLIN V POTASSIUM
     Indication: Product used for unknown indication
     Dosage: UNK
     Route: 065
  271. SENNA LEAF [Suspect]
     Active Substance: SENNA LEAF
     Indication: Product used for unknown indication
     Dosage: UNK (DROPS ORAL)
     Route: 065
  272. SULFADIAZINE [Suspect]
     Active Substance: SULFADIAZINE
     Indication: Product used for unknown indication
     Dosage: UNK
     Route: 065
  273. SULFADIAZINE [Suspect]
     Active Substance: SULFADIAZINE
     Dosage: UNK
     Route: 065
  274. ALBUTEROL [Suspect]
     Active Substance: ALBUTEROL
     Indication: Eosinophilic granulomatosis with polyangiitis
     Dosage: UNK
     Route: 065
  275. ALBUTEROL [Suspect]
     Active Substance: ALBUTEROL
     Dosage: UNK
     Route: 065
  276. ALBUTEROL [Suspect]
     Active Substance: ALBUTEROL
     Dosage: UNK
     Route: 065
  277. AZITHROMYCIN [Suspect]
     Active Substance: AZITHROMYCIN
     Indication: Product used for unknown indication
     Dosage: UNK
     Route: 065
  278. AZITHROMYCIN [Suspect]
     Active Substance: AZITHROMYCIN
     Dosage: 250 MILLIGRAM, DAILY
     Route: 065
  279. AZITHROMYCIN [Suspect]
     Active Substance: AZITHROMYCIN
     Dosage: UNK
     Route: 065
  280. AZITHROMYCIN [Suspect]
     Active Substance: AZITHROMYCIN
     Dosage: UNK
     Route: 065
  281. AZITHROMYCIN [Suspect]
     Active Substance: AZITHROMYCIN
     Dosage: UNK
     Route: 065
  282. AZITHROMYCIN [Suspect]
     Active Substance: AZITHROMYCIN
     Dosage: 2 DOSAGE FORM
     Route: 065
  283. AZITHROMYCIN [Suspect]
     Active Substance: AZITHROMYCIN
     Dosage: UNK
     Route: 065
  284. AZITHROMYCIN [Suspect]
     Active Substance: AZITHROMYCIN
     Dosage: 1 DOSAGE FORM, DAILY
     Route: 065
  285. AZITHROMYCIN [Suspect]
     Active Substance: AZITHROMYCIN
     Dosage: UNK
     Route: 065
  286. AZITHROMYCIN [Suspect]
     Active Substance: AZITHROMYCIN
     Indication: Product used for unknown indication
     Dosage: UNK
     Route: 065
  287. AZITHROMYCIN [Suspect]
     Active Substance: AZITHROMYCIN
     Dosage: 250 MILLIGRAM, QD
     Route: 065
  288. AZITHROMYCIN [Suspect]
     Active Substance: AZITHROMYCIN
     Dosage: UNK
     Route: 065
  289. AZITHROMYCIN [Suspect]
     Active Substance: AZITHROMYCIN
     Dosage: 1 DOSAGE FORM, QD
     Route: 065
  290. AZITHROMYCIN [Suspect]
     Active Substance: AZITHROMYCIN
     Dosage: UNK
     Route: 065
  291. AZITHROMYCIN [Suspect]
     Active Substance: AZITHROMYCIN
     Dosage: UNK
     Route: 065
  292. AZITHROMYCIN [Suspect]
     Active Substance: AZITHROMYCIN
     Dosage: 2 DOSAGE FORM
     Route: 065
  293. AZITHROMYCIN [Suspect]
     Active Substance: AZITHROMYCIN
     Dosage: UNK
     Route: 065
  294. BENFOTIAMINE [Suspect]
     Active Substance: BENFOTIAMINE
     Indication: Product used for unknown indication
     Dosage: UNK
     Route: 065
  295. FINASTERIDE [Suspect]
     Active Substance: FINASTERIDE
     Indication: Product used for unknown indication
     Dosage: UNK
     Route: 065
  296. LEVOFLOXACIN [Suspect]
     Active Substance: LEVOFLOXACIN
     Indication: Product used for unknown indication
     Dosage: UNK
     Route: 065
  297. PENICILLIN G SODIUM [Suspect]
     Active Substance: PENICILLIN G SODIUM
     Indication: Product used for unknown indication
     Dosage: UNK
     Route: 065
  298. SENNA ALATA WHOLE [Suspect]
     Active Substance: SENNA ALATA WHOLE
     Indication: Product used for unknown indication
     Dosage: 1 DOSAGE FORM, DAILY
     Route: 065
  299. CANDESARTAN CILEXETIL-HYDROCHLOROTHIAZIDE [Suspect]
     Active Substance: CANDESARTAN CILEXETIL\HYDROCHLOROTHIAZIDE
     Indication: Product used for unknown indication
     Dosage: 1 DOSAGE FORM, DAILY
     Route: 065
  300. CANDESARTAN CILEXETIL-HYDROCHLOROTHIAZIDE [Suspect]
     Active Substance: CANDESARTAN CILEXETIL\HYDROCHLOROTHIAZIDE
     Route: 048
  301. CANDESARTAN CILEXETIL-HYDROCHLOROTHIAZIDE [Suspect]
     Active Substance: CANDESARTAN CILEXETIL\HYDROCHLOROTHIAZIDE
     Route: 065
  302. ANORO ELLIPTA [Suspect]
     Active Substance: UMECLIDINIUM BROMIDE\VILANTEROL TRIFENATATE
     Indication: Product used for unknown indication
     Dosage: 1 DOSAGE FORM, DAILY (FOR ORAL INHALATION)
     Route: 065
  303. ANORO ELLIPTA [Suspect]
     Active Substance: UMECLIDINIUM BROMIDE\VILANTEROL TRIFENATATE
     Dosage: 1 DOSAGE FORM, DAILY (FOR ORAL INHALATION)
     Route: 065
  304. ANORO ELLIPTA [Suspect]
     Active Substance: UMECLIDINIUM BROMIDE\VILANTEROL TRIFENATATE
     Dosage: 1 DOSAGE FORM
     Route: 065
  305. ANORO ELLIPTA [Suspect]
     Active Substance: UMECLIDINIUM BROMIDE\VILANTEROL TRIFENATATE
     Dosage: UNK (FOR ORAL INHALATION)
     Route: 065
  306. ANORO ELLIPTA [Suspect]
     Active Substance: UMECLIDINIUM BROMIDE\VILANTEROL TRIFENATATE
     Dosage: 1 DOSAGE FORM, DAILY (FOR ORAL INHALATION)
     Route: 065
  307. ANORO ELLIPTA [Suspect]
     Active Substance: UMECLIDINIUM BROMIDE\VILANTEROL TRIFENATATE
     Dosage: UNK (FOR ORAL INHALATION)
     Route: 065
  308. BREO ELLIPTA [Suspect]
     Active Substance: FLUTICASONE FUROATE\VILANTEROL TRIFENATATE
     Indication: Product used for unknown indication
     Dosage: UNK
  309. CALCIUM PANTOTHENATE [Suspect]
     Active Substance: CALCIUM PANTOTHENATE
     Indication: Product used for unknown indication
     Dosage: UNK
     Route: 065
  310. CHOLECALCIFEROL [Suspect]
     Active Substance: CHOLECALCIFEROL
     Indication: Product used for unknown indication
     Dosage: UNK
     Route: 065
  311. CHOLECALCIFEROL [Suspect]
     Active Substance: CHOLECALCIFEROL
     Dosage: UNK
     Route: 065
  312. .ALPHA.-TOCOPHEROL ACETATE, D- [Suspect]
     Active Substance: .ALPHA.-TOCOPHEROL ACETATE, D-
     Indication: Product used for unknown indication
     Dosage: UNK
     Route: 065
  313. FERROUS SULFATE [Suspect]
     Active Substance: FERROUS SULFATE
     Indication: Product used for unknown indication
     Dosage: UNK
     Route: 065
  314. FORMOTEROL FUMARATE\MOMETASONE FUROATE [Suspect]
     Active Substance: FORMOTEROL FUMARATE\MOMETASONE FUROATE
     Indication: Product used for unknown indication
     Dosage: UNK
     Route: 065
  315. FORMOTEROL FUMARATE\MOMETASONE FUROATE [Suspect]
     Active Substance: FORMOTEROL FUMARATE\MOMETASONE FUROATE
     Dosage: UNK
     Route: 065
  316. UNSPECIFIED INGREDIENT [Suspect]
     Active Substance: UNSPECIFIED INGREDIENT
     Indication: Product used for unknown indication
     Dosage: UNK
     Route: 042
  317. NICOTINAMIDE [Suspect]
     Active Substance: NIACINAMIDE
     Indication: Product used for unknown indication
     Dosage: UNK
     Route: 065
  318. NOVORAPID [Suspect]
     Active Substance: INSULIN ASPART
     Indication: Product used for unknown indication
     Dosage: 1 DOSAGE FORM, DAILY
     Route: 058
  319. NOVORAPID [Suspect]
     Active Substance: INSULIN ASPART
     Dosage: UNK
     Route: 058
  320. NOVORAPID [Suspect]
     Active Substance: INSULIN ASPART
     Dosage: UNK
     Route: 058
  321. UNSPECIFIED INGREDIENT [Suspect]
     Active Substance: UNSPECIFIED INGREDIENT
     Indication: Product used for unknown indication
     Dosage: UNK
     Route: 065
  322. UNSPECIFIED INGREDIENT [Suspect]
     Active Substance: UNSPECIFIED INGREDIENT
     Dosage: UNK
     Route: 065
  323. LEVOFLOXACIN [Suspect]
     Active Substance: LEVOFLOXACIN
     Indication: Product used for unknown indication
     Route: 065
  324. LEVOFLOXACIN [Suspect]
     Active Substance: LEVOFLOXACIN
     Dosage: 750 MILLIGRAM  (100MG/ML. 2.4ML SINGLE USE AMPOULE)
     Route: 065
  325. LEVOFLOXACIN [Suspect]
     Active Substance: LEVOFLOXACIN
     Dosage: 3 DOSAGE FORM, DAILY (100MG/ML. 2.4ML SINGLE USE AMPOULE)
     Route: 065
  326. LEVOFLOXACIN [Suspect]
     Active Substance: LEVOFLOXACIN
     Dosage: UNK (100MG/ML. 2.4ML SINGLE USE AMPOULE)
     Route: 065
  327. MAGNESIUM [Suspect]
     Active Substance: MAGNESIUM
     Indication: Product used for unknown indication
     Dosage: UNK
     Route: 065
  328. DIETARY SUPPLEMENT [Suspect]
     Active Substance: DIETARY SUPPLEMENT
     Indication: Product used for unknown indication
     Dosage: UNK
     Route: 065
  329. ZINC [Suspect]
     Active Substance: ZINC
     Indication: Product used for unknown indication
     Dosage: UNK
     Route: 065
  330. CEFUROXIME [Suspect]
     Active Substance: CEFUROXIME
     Indication: Product used for unknown indication
     Dosage: 12 HOURS
     Route: 065
  331. CEFUROXIME [Suspect]
     Active Substance: CEFUROXIME
     Dosage: 2 DOSAGE FORM, Q12H
     Route: 065
  332. CEFUROXIME [Suspect]
     Active Substance: CEFUROXIME
     Dosage: 2 DOSAGE FORM, DAILY
     Route: 065
  333. CEFUROXIME [Suspect]
     Active Substance: CEFUROXIME
     Dosage: 1000 MILLIGRAM
     Route: 065
  334. CEFUROXIME [Suspect]
     Active Substance: CEFUROXIME
     Dosage: 500 MILLIGRAM
     Route: 065
  335. CEFUROXIME [Suspect]
     Active Substance: CEFUROXIME
     Dosage: UNK, QD
     Route: 065
  336. CEFUROXIME [Suspect]
     Active Substance: CEFUROXIME
     Dosage: UNK
     Route: 065
  337. CEFUROXIME [Suspect]
     Active Substance: CEFUROXIME
     Dosage: UNK, QD
     Route: 065
  338. CEFUROXIME [Suspect]
     Active Substance: CEFUROXIME
     Dosage: UNK
     Route: 065
  339. CEFUROXIME [Suspect]
     Active Substance: CEFUROXIME
     Dosage: 2000 MILLIGRAM, QD
     Route: 065
  340. CEFUROXIME [Suspect]
     Active Substance: CEFUROXIME
     Dosage: 1 MILLIGRAM, QD
     Route: 065
  341. CEFUROXIME [Suspect]
     Active Substance: CEFUROXIME
     Dosage: UNK, QD
     Route: 065
  342. CEFUROXIME [Suspect]
     Active Substance: CEFUROXIME
     Dosage: 500 MILLIGRAM, Q12H
  343. CEFUROXIME [Suspect]
     Active Substance: CEFUROXIME
     Dosage: 1 DOSAGE FORM, DAILY
     Route: 065
  344. CEFUROXIME [Suspect]
     Active Substance: CEFUROXIME
     Dosage: UNK
     Route: 065
  345. CEFUROXIME [Suspect]
     Active Substance: CEFUROXIME
     Dosage: UNK
     Route: 065
  346. CEFUROXIME [Suspect]
     Active Substance: CEFUROXIME
     Dosage: 500 MILLIGRAM
     Route: 065
  347. CEFUROXIME [Suspect]
     Active Substance: CEFUROXIME
     Dosage: 500 MILLIGRAM, QD
     Route: 065
  348. CEFUROXIME [Suspect]
     Active Substance: CEFUROXIME
     Dosage: UNK
     Route: 065
  349. CEFUROXIME [Suspect]
     Active Substance: CEFUROXIME
     Dosage: UNK UNK, QD
     Route: 065
  350. CEFUROXIME [Suspect]
     Active Substance: CEFUROXIME
     Dosage: UNK UNK, QD
     Route: 065
  351. CEFUROXIME [Suspect]
     Active Substance: CEFUROXIME
     Dosage: 500 MILLIGRAM
     Route: 065
  352. FLUTICASONE [Suspect]
     Active Substance: FLUTICASONE
     Indication: Product used for unknown indication
     Dosage: UNK
     Route: 065
  353. FLUTICASONE [Suspect]
     Active Substance: FLUTICASONE
     Indication: Product used for unknown indication
     Dosage: UNK
     Route: 065
  354. FLUTICASONE [Suspect]
     Active Substance: FLUTICASONE
     Dosage: UNK
     Route: 065
  355. FLUTICASONE PROPIONATE\SALMETEROL XINAFOATE [Suspect]
     Active Substance: FLUTICASONE PROPIONATE\SALMETEROL XINAFOATE
     Indication: Product used for unknown indication
     Dosage: UNK
     Route: 065
  356. FERROUS SULFATE ANHYDROUS [Suspect]
     Active Substance: FERROUS SULFATE ANHYDROUS
     Indication: Product used for unknown indication
     Dosage: UNK
     Route: 065
  357. LEVOFLOXACIN [Suspect]
     Active Substance: LEVOFLOXACIN
     Indication: Product used for unknown indication
     Dosage: UNK
     Route: 065
  358. LEVOFLOXACIN [Suspect]
     Active Substance: LEVOFLOXACIN
     Dosage: UNK
     Route: 065
  359. PANTOPRAZOLE SODIUM [Suspect]
     Active Substance: PANTOPRAZOLE SODIUM
     Indication: Product used for unknown indication
     Dosage: UNK
     Route: 065
  360. PANTOPRAZOLE SODIUM [Suspect]
     Active Substance: PANTOPRAZOLE SODIUM
     Dosage: 1 DOSAGE FORM, Q12H
     Route: 065
  361. PANTOPRAZOLE SODIUM [Suspect]
     Active Substance: PANTOPRAZOLE SODIUM
     Dosage: 2 DOSAGE FORM, Q12H
     Route: 065
  362. TUMS [Suspect]
     Active Substance: CALCIUM CARBONATE
     Indication: Product used for unknown indication
     Dosage: UNK
     Route: 065
  363. TUMS [Suspect]
     Active Substance: CALCIUM CARBONATE
     Dosage: UNK
     Route: 065
  364. TUMS [Suspect]
     Active Substance: CALCIUM CARBONATE
     Dosage: 2 DOSAGE FORM, QD
     Route: 065
  365. TUMS [Suspect]
     Active Substance: CALCIUM CARBONATE
     Dosage: 500 MILLIGRAM, QD
     Route: 065
  366. TUMS [Suspect]
     Active Substance: CALCIUM CARBONATE
     Dosage: 1 DOSAGE FORM, QD
     Route: 065
  367. TUMS [Suspect]
     Active Substance: CALCIUM CARBONATE
     Dosage: UNK
     Route: 065
  368. ACTOS [Suspect]
     Active Substance: PIOGLITAZONE HYDROCHLORIDE
     Indication: Product used for unknown indication
     Dosage: UNK
     Route: 065
  369. BUDESONIDE\FORMOTEROL [Suspect]
     Active Substance: BUDESONIDE\FORMOTEROL
     Indication: Product used for unknown indication
     Dosage: UNK
     Route: 065
  370. DIETARY SUPPLEMENT [Suspect]
     Active Substance: DIETARY SUPPLEMENT
     Indication: Product used for unknown indication
     Dosage: UNK
     Route: 065
  371. DIETARY SUPPLEMENT [Suspect]
     Active Substance: DIETARY SUPPLEMENT
     Dosage: UNK
     Route: 065
  372. CALCIUM CARBONATE\MAGNESIUM CARBONATE\MAGNESIUM TRISILICATE [Suspect]
     Active Substance: CALCIUM CARBONATE\MAGNESIUM CARBONATE\MAGNESIUM TRISILICATE
     Indication: Product used for unknown indication
     Dosage: 2 DOSAGE FORM, DAILY
     Route: 065
  373. CALCIUM CARBONATE\MAGNESIUM CARBONATE\MAGNESIUM TRISILICATE [Suspect]
     Active Substance: CALCIUM CARBONATE\MAGNESIUM CARBONATE\MAGNESIUM TRISILICATE
     Dosage: 500 MILLIGRAM, DAILY
     Route: 065
  374. CALCIUM CARBONATE\MAGNESIUM CARBONATE\MAGNESIUM TRISILICATE [Suspect]
     Active Substance: CALCIUM CARBONATE\MAGNESIUM CARBONATE\MAGNESIUM TRISILICATE
     Dosage: 1 DOSAGE FORM, DAILY
     Route: 065
  375. CALCIUM CARBONATE\MAGNESIUM CARBONATE\MAGNESIUM TRISILICATE [Suspect]
     Active Substance: CALCIUM CARBONATE\MAGNESIUM CARBONATE\MAGNESIUM TRISILICATE
     Dosage: UNK
     Route: 065
  376. CALCIUM PANTOTHENATE\CYANOCOBALAMIN\NIACINAMIDE\PYRIDOXINE HYDROCHLORI [Suspect]
     Active Substance: CALCIUM PANTOTHENATE\CYANOCOBALAMIN\NIACINAMIDE\PYRIDOXINE HYDROCHLORIDE\RIBOFLAVIN\THIAMINE HYDROCH
     Indication: Product used for unknown indication
     Dosage: UNK
     Route: 065
  377. CANDESARTAN CILEXETIL [Suspect]
     Active Substance: CANDESARTAN CILEXETIL
     Indication: Product used for unknown indication
     Dosage: 1 DOSAGE FORM, DAILY
     Route: 065
  378. CANDESARTAN CILEXETIL [Suspect]
     Active Substance: CANDESARTAN CILEXETIL
     Dosage: 1 DOSAGE FORM, DAILY
     Route: 065
  379. CANDESARTAN CILEXETIL [Suspect]
     Active Substance: CANDESARTAN CILEXETIL
     Dosage: UNK, DAILY
     Route: 065
  380. CANDESARTAN CILEXETIL [Suspect]
     Active Substance: CANDESARTAN CILEXETIL
     Dosage: 52 MILLIGRAM, DAILY
     Route: 048
  381. CANDESARTAN CILEXETIL [Suspect]
     Active Substance: CANDESARTAN CILEXETIL
     Dosage: 1 DOSAGE FORM, DAILY
     Route: 065
  382. CANDESARTAN CILEXETIL [Suspect]
     Active Substance: CANDESARTAN CILEXETIL
     Dosage: 500 MILLIGRAM, DAILY
     Route: 065
  383. CANDESARTAN CILEXETIL [Suspect]
     Active Substance: CANDESARTAN CILEXETIL
     Dosage: 32 MILLIGRAM, DAILY
     Route: 065
  384. CANDESARTAN CILEXETIL [Suspect]
     Active Substance: CANDESARTAN CILEXETIL
     Dosage: UNK
     Route: 065
  385. CANDESARTAN CILEXETIL [Suspect]
     Active Substance: CANDESARTAN CILEXETIL
     Dosage: UNK, DAILY
     Route: 048
  386. CANDESARTAN CILEXETIL [Suspect]
     Active Substance: CANDESARTAN CILEXETIL
     Dosage: 32 MILLIGRAM, DAILY
     Route: 048
  387. CANDESARTAN CILEXETIL [Suspect]
     Active Substance: CANDESARTAN CILEXETIL
     Dosage: UNK
     Route: 065
  388. FERROUS FUMARATE [Suspect]
     Active Substance: FERROUS FUMARATE
     Indication: Product used for unknown indication
     Dosage: UNK
     Route: 065
  389. DOMPERIDONE [Suspect]
     Active Substance: DOMPERIDONE
     Indication: Product used for unknown indication
     Dosage: 20 MILLIGRAM
     Route: 065
  390. DOMPERIDONE [Suspect]
     Active Substance: DOMPERIDONE
     Dosage: 10 MILLIGRAM
     Route: 065
  391. DOMPERIDONE [Suspect]
     Active Substance: DOMPERIDONE
     Dosage: UNK
     Route: 065
  392. DOMPERIDONE [Suspect]
     Active Substance: DOMPERIDONE
     Dosage: UNK
     Route: 065
  393. MONTELUKAST [Suspect]
     Active Substance: MONTELUKAST
     Indication: Product used for unknown indication
     Dosage: UNK
     Route: 065
  394. PEDIAPRED [Suspect]
     Active Substance: PREDNISOLONE SODIUM PHOSPHATE
     Indication: Product used for unknown indication
     Dosage: 80 MILLIGRAM, DAILY
     Route: 065
  395. PEDIAPRED [Suspect]
     Active Substance: PREDNISOLONE SODIUM PHOSPHATE
     Dosage: 50 MILLIGRAM, DAILY
     Route: 065
  396. PEDIAPRED [Suspect]
     Active Substance: PREDNISOLONE SODIUM PHOSPHATE
     Dosage: UNK
     Route: 065
  397. PEDIAPRED [Suspect]
     Active Substance: PREDNISOLONE SODIUM PHOSPHATE
     Dosage: 50 MILLIGRAM
     Route: 065
  398. PEDIAPRED [Suspect]
     Active Substance: PREDNISOLONE SODIUM PHOSPHATE
     Dosage: UNK
     Route: 065
  399. PEDIAPRED [Suspect]
     Active Substance: PREDNISOLONE SODIUM PHOSPHATE
     Dosage: UNK
     Route: 065
  400. PEDIAPRED [Suspect]
     Active Substance: PREDNISOLONE SODIUM PHOSPHATE
     Dosage: 80 MILLIGRAM
     Route: 065
  401. PEDIAPRED [Suspect]
     Active Substance: PREDNISOLONE SODIUM PHOSPHATE
     Dosage: UNK
     Route: 065
  402. PEDIAPRED [Suspect]
     Active Substance: PREDNISOLONE SODIUM PHOSPHATE
     Dosage: 50 MILLIGRAM, DAILY
     Route: 065
  403. PEDIAPRED [Suspect]
     Active Substance: PREDNISOLONE SODIUM PHOSPHATE
     Indication: Product used for unknown indication
     Dosage: 50 MILLIGRAM, DAILY
     Route: 065
  404. PIOGLITAZONE HYDROCHLORIDE [Suspect]
     Active Substance: PIOGLITAZONE HYDROCHLORIDE
     Indication: Product used for unknown indication
     Dosage: UNK
     Route: 065
  405. PIOGLITAZONE [Suspect]
     Active Substance: PIOGLITAZONE
     Indication: Product used for unknown indication
     Dosage: UNK
     Route: 065
  406. PIOGLITAZONE [Suspect]
     Active Substance: PIOGLITAZONE
     Dosage: UNK
     Route: 065
  407. PULMICORT TURBUHALER [Suspect]
     Active Substance: BUDESONIDE
     Indication: Product used for unknown indication
     Dosage: UNK
     Route: 065
  408. AMOXICILLIN [Suspect]
     Active Substance: AMOXICILLIN
     Indication: Product used for unknown indication
     Dosage: UNK
     Route: 065
  409. CUPRIC OXIDE\FOLIC ACID\NIACIN\ZINC OXIDE [Suspect]
     Active Substance: CUPRIC OXIDE\FOLIC ACID\NIACIN\ZINC OXIDE
     Indication: Product used for unknown indication
     Dosage: UNK
     Route: 065
  410. CUPRIC SULFATE ANHYDROUS [Suspect]
     Active Substance: CUPRIC SULFATE ANHYDROUS
     Indication: Product used for unknown indication
     Dosage: UNK
     Route: 065
  411. RUPATADINE FUMARATE [Suspect]
     Active Substance: RUPATADINE FUMARATE
     Indication: Product used for unknown indication
     Dosage: UNK
     Route: 065
  412. BECLOMETHASONE DIPROPIONATE\CLOTRIMAZOLE [Suspect]
     Active Substance: BECLOMETHASONE DIPROPIONATE\CLOTRIMAZOLE
     Indication: Product used for unknown indication
     Dosage: UNK
     Route: 065
  413. ROSUVASTATIN CALCIUM [Concomitant]
     Active Substance: ROSUVASTATIN CALCIUM
     Indication: Product used for unknown indication
     Dosage: UNK
     Route: 065
  414. LEVOTHYROXINE [Concomitant]
     Active Substance: LEVOTHYROXINE
     Indication: Product used for unknown indication
     Dosage: UNK
     Route: 065
  415. ROSUVASTATIN [Concomitant]
     Active Substance: ROSUVASTATIN
     Indication: Product used for unknown indication
     Dosage: UNK
     Route: 058
  416. ROSUVASTATIN [Concomitant]
     Active Substance: ROSUVASTATIN
     Indication: Product used for unknown indication
     Dosage: UNK
     Route: 065
  417. ROSUVASTATIN [Concomitant]
     Active Substance: ROSUVASTATIN
     Dosage: 20.0 MILLIGRAM
     Route: 058
  418. SULFAMETHOXAZOLE\TRIMETHOPRIM [Concomitant]
     Active Substance: SULFAMETHOXAZOLE\TRIMETHOPRIM
     Indication: Product used for unknown indication
     Dosage: UNK
     Route: 065
  419. ESCITALOPRAM OXALATE [Concomitant]
     Active Substance: ESCITALOPRAM OXALATE
     Indication: Product used for unknown indication
     Dosage: UNK
     Route: 065
  420. ESCITALOPRAM OXALATE [Concomitant]
     Active Substance: ESCITALOPRAM OXALATE
     Dosage: 10.0 MILLIGRAM
     Route: 065
  421. CUPRIC SULFATE ANHYDROUS [Concomitant]
     Active Substance: CUPRIC SULFATE ANHYDROUS
     Indication: Product used for unknown indication
     Dosage: UNK
     Route: 065
  422. CUPRIC SULFATE ANHYDROUS [Concomitant]
     Active Substance: CUPRIC SULFATE ANHYDROUS
     Dosage: UNK
     Route: 065
  423. FLUTICASONE [Concomitant]
     Active Substance: FLUTICASONE
     Indication: Product used for unknown indication
     Dosage: UNK
     Route: 065
  424. PHENOXYMETHYLPENICILLIN SODIUM [Concomitant]
     Active Substance: PHENOXYMETHYLPENICILLIN SODIUM
     Indication: Product used for unknown indication
     Dosage: UNK
     Route: 065
  425. SULFAMETHOXAZOLE [Concomitant]
     Active Substance: SULFAMETHOXAZOLE
     Indication: Product used for unknown indication
     Dosage: UNK
     Route: 065
  426. SULFAMETHOXAZOLE [Concomitant]
     Active Substance: SULFAMETHOXAZOLE
     Dosage: UNK
     Route: 065
  427. TRIMETHOPRIM [Concomitant]
     Active Substance: TRIMETHOPRIM
     Indication: Product used for unknown indication
     Dosage: UNK
     Route: 065
  428. TRIMETHOPRIM [Concomitant]
     Active Substance: TRIMETHOPRIM
     Dosage: UNK
     Route: 065
  429. CANDESARTAN CILEXETIL [Concomitant]
     Active Substance: CANDESARTAN CILEXETIL
     Dosage: UNK
     Route: 065

REACTIONS (41)
  - Antineutrophil cytoplasmic antibody positive [Fatal]
  - Arteriosclerosis [Fatal]
  - Arteriosclerosis coronary artery [Fatal]
  - Asthma [Fatal]
  - Condition aggravated [Fatal]
  - Conjunctivitis allergic [Fatal]
  - Dust allergy [Fatal]
  - Dyspnoea [Fatal]
  - Eosinophilic granulomatosis with polyangiitis [Fatal]
  - Full blood count abnormal [Fatal]
  - Haemoptysis [Fatal]
  - Hypothyroidism [Fatal]
  - Hypoxia [Fatal]
  - Lung disorder [Fatal]
  - Mite allergy [Fatal]
  - Mycotic allergy [Fatal]
  - Neuritis [Fatal]
  - Neurological symptom [Fatal]
  - Nodule [Fatal]
  - Normochromic normocytic anaemia [Fatal]
  - Obstructive airways disorder [Fatal]
  - Pain in extremity [Fatal]
  - Productive cough [Fatal]
  - Pulmonary alveolar haemorrhage [Fatal]
  - Pulmonary embolism [Fatal]
  - Pulmonary fibrosis [Fatal]
  - Pulmonary vasculitis [Fatal]
  - Respiratory symptom [Fatal]
  - Sleep disorder due to a general medical condition [Fatal]
  - Spirometry abnormal [Fatal]
  - Thrombosis [Fatal]
  - Total lung capacity abnormal [Fatal]
  - Vasculitis [Fatal]
  - Wheezing [Fatal]
  - Loss of personal independence in daily activities [Fatal]
  - Capillaritis [Fatal]
  - Forced expiratory volume decreased [Fatal]
  - Sleep disorder [Fatal]
  - Death [Fatal]
  - Anxiety [Fatal]
  - Therapeutic product effect incomplete [Fatal]
